FAERS Safety Report 4981700-1 (Version None)
Quarter: 2006Q2

REPORT INFORMATION
  Report Type: 
  Country: None (occurrence: None)
  Receive Date: 20060421
  Receipt Date: 20060411
  Transmission Date: 20061013
  Serious: Yes (Other)
  Sender: FDA-Public Use
  Company Number: 2006051322

PATIENT
  Age: 53 Year
  Sex: Male
  Weight: 104.3273 kg

DRUGS (9)
  1. LYRICA [Suspect]
     Indication: NEUROPATHY
     Dosage: 300 MG (300 MG, 1 IN 1 D), ORAL
     Route: 048
     Dates: start: 20051201, end: 20060102
  2. INSULIN [Concomitant]
  3. TOPROL-XL [Concomitant]
  4. ACCOLATE [Concomitant]
  5. ECOTRIN (ACETYLSALICYLIC ACID) [Concomitant]
  6. ALLEGRA [Concomitant]
  7. CLONIDINE [Concomitant]
  8. TAMSULOSIN HCL [Concomitant]
  9. ALL OTHER THERAPEUTIC PRODUCTS (ALL OTHER THERAPEUTIC PRODUCTS) [Concomitant]

REACTIONS (4)
  - ASTHENIA [None]
  - DIPLEGIA [None]
  - FALL [None]
  - LOSS OF CONTROL OF LEGS [None]
